FAERS Safety Report 6372584-8 (Version None)
Quarter: 2009Q3

REPORT INFORMATION
  Report Type: 
  Country: None (occurrence: None)
  Receive Date: 20090924
  Receipt Date: 20090313
  Transmission Date: 20100115
  Serious: No
  Sender: FDA-Public Use
  Company Number: US-ASTRAZENECA-2008UW18969

PATIENT
  Age: 44 Year
  Sex: Female
  Weight: 120.7 kg

DRUGS (11)
  1. SEROQUEL [Suspect]
     Indication: DEPRESSION
     Dosage: 100 TO 300 MG
     Route: 048
     Dates: start: 20030901, end: 20070101
  2. SEROQUEL [Suspect]
     Indication: BIPOLAR DISORDER
     Dosage: 100 TO 300 MG
     Route: 048
     Dates: start: 20030901, end: 20070101
  3. SEROQUEL [Suspect]
     Dosage: 100 TO 300 MG
     Route: 048
     Dates: start: 20080101
  4. SEROQUEL [Suspect]
     Dosage: 100 TO 300 MG
     Route: 048
     Dates: start: 20080101
  5. GEODON [Concomitant]
     Dates: start: 20080101
  6. LITHIUM [Concomitant]
     Dates: start: 20080101
  7. TRAZODONE [Concomitant]
     Dates: start: 20080101
  8. CELEXA [Concomitant]
     Dosage: 20 TO 40 MG
     Dates: start: 20030401, end: 20041001
  9. CLONAZEPAM [Concomitant]
     Dosage: 0.5 MG TO 1 MG
     Dates: start: 20030901, end: 20041201
  10. WELLBUTRIN [Concomitant]
     Dosage: 100 TO 150 MG
     Dates: start: 20031201, end: 20050301
  11. CITALOPRAM [Concomitant]
     Dosage: 20-40 MG
     Dates: start: 20061201

REACTIONS (6)
  - ARTHROPATHY [None]
  - GASTROINTESTINAL DISORDER [None]
  - HYPERGLYCAEMIA [None]
  - HYPERTENSION [None]
  - INTERVERTEBRAL DISC PROTRUSION [None]
  - TYPE 2 DIABETES MELLITUS [None]
